FAERS Safety Report 22311863 (Version 1)
Quarter: 2023Q2

REPORT INFORMATION
  Report Type: Report from Study
  Country: US (occurrence: US)
  Receive Date: 20230512
  Receipt Date: 20230512
  Transmission Date: 20230721
  Serious: Yes (Other)
  Sender: FDA-Public Use
  Company Number: US-ABBVIE-4753039

PATIENT
  Sex: Female

DRUGS (1)
  1. RINVOQ [Suspect]
     Active Substance: UPADACITINIB
     Indication: Rheumatoid arthritis
     Route: 048
     Dates: start: 20220401

REACTIONS (5)
  - Medical device implantation [Unknown]
  - Stress [Unknown]
  - Procedural pain [Not Recovered/Not Resolved]
  - Fibromyalgia [Unknown]
  - Psoriatic arthropathy [Unknown]
